FAERS Safety Report 24236351 (Version 1)
Quarter: 2024Q3

REPORT INFORMATION
  Report Type: Spontaneous
  Country: CN (occurrence: CN)
  Receive Date: 20240822
  Receipt Date: 20240822
  Transmission Date: 20241016
  Serious: Yes (Other)
  Sender: ROCHE
  Company Number: CN-ROCHE-10000061283

PATIENT
  Age: 48 Year
  Sex: Female

DRUGS (5)
  1. ADO-TRASTUZUMAB EMTANSINE [Suspect]
     Active Substance: ADO-TRASTUZUMAB EMTANSINE
     Indication: Invasive breast carcinoma
     Route: 065
  2. TRASTUZUMAB [Suspect]
     Active Substance: TRASTUZUMAB
     Indication: Invasive breast carcinoma
     Dosage: SUBSEQUENT DOSE ON 08-AUG-2023, 28-AUG-2023, 26-SEP-2023, 18-OCT-2023, 13-NOV-2024, 13-DEC-2023
     Route: 065
     Dates: start: 20230625
  3. PERTUZUMAB [Suspect]
     Active Substance: PERTUZUMAB
     Indication: Invasive breast carcinoma
     Dosage: SUBSEQUENT DOSE ON 08-AUG-2023, 28-AUG-2023, 26-SEP-2023, 18-OCT-2023, 13-NOV-2024, 13-DEC-2023
     Route: 065
     Dates: start: 20230625
  4. DOCETAXEL [Concomitant]
     Active Substance: DOCETAXEL\DOCETAXEL ANHYDROUS
     Indication: Invasive breast carcinoma
     Dates: start: 20230625
  5. CARBOPLATIN [Concomitant]
     Active Substance: CARBOPLATIN
     Indication: Invasive breast carcinoma
     Dates: start: 20230625

REACTIONS (2)
  - Myelosuppression [Recovering/Resolving]
  - Gastrointestinal disorder [Recovering/Resolving]
